FAERS Safety Report 18252259 (Version 3)
Quarter: 2020Q3

REPORT INFORMATION
  Report Type: Spontaneous
  Country: US (occurrence: US)
  Receive Date: 20200910
  Receipt Date: 20200910
  Transmission Date: 20201103
  Serious: No
  Sender: FDA-Public Use
  Company Number: US-FARMAPROD-202004-0587

PATIENT
  Sex: Female

DRUGS (4)
  1. MOXIFLOXACIN. [Concomitant]
     Active Substance: MOXIFLOXACIN
  2. METHOTREXATE. [Concomitant]
     Active Substance: METHOTREXATE
  3. OXERVATE [Suspect]
     Active Substance: CENEGERMIN-BKBJ
     Indication: NEUROTROPHIC KERATOPATHY
     Dates: start: 20200409
  4. BACITRACIN?POLYMYXIN [Concomitant]

REACTIONS (4)
  - Eye pain [Unknown]
  - Rhinalgia [Unknown]
  - Headache [Unknown]
  - Facial pain [Recovered/Resolved]
